FAERS Safety Report 4974604-1 (Version None)
Quarter: 2006Q2

REPORT INFORMATION
  Report Type: 
  Country: None (occurrence: None)
  Receive Date: 20060410
  Receipt Date: 20060322
  Transmission Date: 20061013
  Serious: Yes (Hospitalization)
  Sender: FDA-Public Use
  Company Number: GB200603001727

PATIENT
  Age: 71 Year
  Sex: Female
  Weight: 57 kg

DRUGS (8)
  1. FORTEO [Suspect]
     Indication: OSTEOPOROSIS
     Dosage: 20 UG, SUBCUTANEOUS
     Route: 058
     Dates: start: 20050801, end: 20050801
  2. FORTEO [Concomitant]
  3. CALCIUM GLUCONATE [Concomitant]
  4. CANDESARTAN [Concomitant]
  5. ZOLPIDEM TARTRATE [Concomitant]
  6. IPRATROPIUM BROMIDE [Concomitant]
  7. PANTOPRAZOLE [Concomitant]
  8. QVAR (BECLOMETASONE DIPROPIONATE) [Concomitant]

REACTIONS (4)
  - CHEST PAIN [None]
  - INJECTION SITE RASH [None]
  - PAIN IN EXTREMITY [None]
  - RASH [None]
